FAERS Safety Report 21675245 (Version 2)
Quarter: 2022Q4

REPORT INFORMATION
  Report Type: Spontaneous
  Country: US (occurrence: US)
  Receive Date: 20221202
  Receipt Date: 20221222
  Transmission Date: 20230113
  Serious: Yes (Other)
  Sender: FDA-Public Use
  Company Number: US-BAYER-2022P023105

PATIENT
  Age: 52 Year
  Sex: Female
  Weight: 68.946 kg

DRUGS (4)
  1. ADEMPAS [Suspect]
     Active Substance: RIOCIGUAT
     Indication: Product used for unknown indication
     Dosage: UNK
  2. ORENITRAM [Suspect]
     Active Substance: TREPROSTINIL
     Indication: Pulmonary arterial hypertension
     Dosage: 3 MG, TID
     Dates: start: 20220329
  3. AMBRISENTAN [Suspect]
     Active Substance: AMBRISENTAN
     Dosage: UNK
  4. DILTIAZEM [Concomitant]
     Active Substance: DILTIAZEM

REACTIONS (15)
  - Systemic lupus erythematosus [None]
  - Urinary tract infection [None]
  - Hypoaesthesia [None]
  - Hot flush [None]
  - Erythema [None]
  - Peripheral swelling [None]
  - Head discomfort [None]
  - Paraesthesia [None]
  - Burning sensation [None]
  - Erythema [None]
  - Headache [None]
  - Vasodilatation [None]
  - Pulmonary arterial pressure increased [None]
  - Pain in extremity [None]
  - Abdominal distension [None]

NARRATIVE: CASE EVENT DATE: 20220101
